FAERS Safety Report 4692819-7 (Version None)
Quarter: 2005Q2

REPORT INFORMATION
  Report Type: 
  Country: None (occurrence: None)
  Receive Date: 20050617
  Receipt Date: 20050607
  Transmission Date: 20051028
  Serious: Yes (Hospitalization, Disabling)
  Sender: FDA-Public Use
  Company Number: 200511495EU

PATIENT
  Age: 19 Year
  Sex: Male

DRUGS (4)
  1. LANTUS [Suspect]
     Indication: DIABETES MELLITUS NON-INSULIN-DEPENDENT
     Route: 058
  2. INSULIN INSULATARD NPH NORDISK [Concomitant]
     Indication: DIABETES MELLITUS NON-INSULIN-DEPENDENT
  3. HUMALOG [Concomitant]
     Indication: DIABETES MELLITUS NON-INSULIN-DEPENDENT
  4. INSULIN PUMP [Concomitant]
     Indication: DIABETES MELLITUS NON-INSULIN-DEPENDENT

REACTIONS (11)
  - ABDOMINAL PAIN [None]
  - ANOREXIA [None]
  - AUTOIMMUNE DISORDER [None]
  - CONFUSIONAL STATE [None]
  - CONSTIPATION [None]
  - GASTROINTESTINAL FUNGAL INFECTION [None]
  - HEPATOMEGALY [None]
  - PAIN [None]
  - PAIN OF SKIN [None]
  - POLYNEUROPATHY [None]
  - WEIGHT INCREASED [None]
